FAERS Safety Report 20773348 (Version 2)
Quarter: 2022Q2

REPORT INFORMATION
  Report Type: Spontaneous
  Country: GR (occurrence: GR)
  Receive Date: 20220502
  Receipt Date: 20220602
  Transmission Date: 20220721
  Serious: No
  Sender: FDA-Public Use
  Company Number: GR-PFIZER INC-202200529227

PATIENT
  Age: 8 Year
  Sex: Female
  Weight: 32 kg

DRUGS (3)
  1. GENOTROPIN [Suspect]
     Active Substance: SOMATROPIN
     Indication: Growth hormone deficiency
     Dosage: 5-6 DAYS
     Route: 058
     Dates: start: 202203
  2. GENOTROPIN [Suspect]
     Active Substance: SOMATROPIN
     Dosage: UNK
     Route: 058
     Dates: start: 202203
  3. KEPPRA [Concomitant]
     Active Substance: LEVETIRACETAM
     Indication: Epilepsy
     Dosage: 12 ML, DAILY
     Route: 048

REACTIONS (3)
  - Dysphemia [Unknown]
  - Incorrect dose administered by device [Unknown]
  - Needle issue [Unknown]
